APPROVED DRUG PRODUCT: PROSOL 20% SULFITE FREE IN PLASTIC CONTAINER
Active Ingredient: AMINO ACIDS
Strength: 20% (20GM/100ML)
Dosage Form/Route: INJECTABLE;INJECTION
Application: N020849 | Product #001
Applicant: BAXTER HEALTHCARE INTERNATI0NAL SPECIALTY THERAPIES DIV
Approved: Aug 26, 1998 | RLD: Yes | RS: Yes | Type: RX